FAERS Safety Report 5162489-2 (Version None)
Quarter: 2006Q4

REPORT INFORMATION
  Report Type: 
  Country: None (occurrence: None)
  Receive Date: 20061129
  Receipt Date: 20061129
  Transmission Date: 20070319
  Serious: Yes (Hospitalization)
  Sender: FDA-Public Use
  Company Number: None

PATIENT
  Age: 85 Year
  Sex: Male
  Weight: 75.2971 kg

DRUGS (1)
  1. AMPICILLIN [Suspect]
     Indication: ENDOCARDITIS PROPHYLAXIS
     Dosage: 2 G ONE TIME IV
     Route: 042
     Dates: start: 20061024, end: 20061024

REACTIONS (6)
  - DYSARTHRIA [None]
  - HYPERHIDROSIS [None]
  - HYPOTENSION [None]
  - NAUSEA [None]
  - PHARYNGEAL OEDEMA [None]
  - VOMITING [None]
